FAERS Safety Report 25254608 (Version 1)
Quarter: 2025Q2

REPORT INFORMATION
  Report Type: Spontaneous
  Country: RO (occurrence: RO)
  Receive Date: 20250430
  Receipt Date: 20250430
  Transmission Date: 20250717
  Serious: Yes (Other)
  Sender: MERCK SHARP & DOHME LLC
  Company Number: RO-009507513-2279810

PATIENT
  Age: 63 Year
  Sex: Female

DRUGS (1)
  1. PEMBROLIZUMAB [Suspect]
     Active Substance: PEMBROLIZUMAB
     Indication: Malignant melanoma
     Dosage: 200 MG, EVERY 3 WEEKS
     Dates: start: 202401, end: 202501

REACTIONS (6)
  - Immune-mediated hepatitis [Recovering/Resolving]
  - Hepatic cytolysis [Unknown]
  - Uterine leiomyoma [Unknown]
  - Cerebral atrophy [Unknown]
  - Haemangioma of liver [Unknown]
  - Cholestasis [Unknown]

NARRATIVE: CASE EVENT DATE: 20240724
